FAERS Safety Report 10186928 (Version 1)
Quarter: 2014Q2

REPORT INFORMATION
  Report Type: Report from Study
  Country: US (occurrence: US)
  Receive Date: 20140522
  Receipt Date: 20140522
  Transmission Date: 20141212
  Serious: Yes (Other)
  Sender: FDA-Public Use
  Company Number: US-BIOGENIDEC-2014BI048058

PATIENT
  Age: 26 Year
  Sex: Female

DRUGS (10)
  1. TYSABRI [Suspect]
     Indication: MULTIPLE SCLEROSIS
     Route: 042
     Dates: start: 20110915
  2. COPAXONE [Concomitant]
  3. BETASERON [Concomitant]
  4. VENLAFAXINE ER [Concomitant]
  5. TOPIRAMATE [Concomitant]
  6. ABILIFY [Concomitant]
  7. SERTRALINE [Concomitant]
  8. KEPPRA [Concomitant]
     Route: 048
  9. ROPINIROLE [Concomitant]
     Indication: RESTLESS LEGS SYNDROME
  10. LORAZEPAM [Concomitant]
     Indication: ANXIETY

REACTIONS (1)
  - Convulsion [Unknown]
